FAERS Safety Report 13194415 (Version 9)
Quarter: 2021Q4

REPORT INFORMATION
  Report Type: Report from Study
  Country: US (occurrence: US)
  Receive Date: 20170207
  Receipt Date: 20211006
  Transmission Date: 20220303
  Serious: Yes (Hospitalization, Other)
  Sender: FDA-Public Use
  Company Number: US-JAZZ-JPI-P-016786

PATIENT
  Age: 47 Year
  Sex: Female
  Weight: 59.09 kg

DRUGS (15)
  1. XYREM [Suspect]
     Active Substance: SODIUM OXYBATE
     Indication: Narcolepsy
     Dosage: 3 GRAM, BID
     Route: 048
     Dates: start: 200610, end: 2006
  2. XYREM [Suspect]
     Active Substance: SODIUM OXYBATE
     Indication: Somnolence
     Dosage: 3.75 GRAM, BID
     Route: 048
     Dates: start: 200611, end: 2007
  3. XYREM [Suspect]
     Active Substance: SODIUM OXYBATE
     Dosage: 4.5 GRAM, BID
     Route: 048
     Dates: start: 200705
  4. XYREM [Suspect]
     Active Substance: SODIUM OXYBATE
     Dosage: UNKNOWN INCREASED DOSE
     Route: 048
  5. XYREM [Suspect]
     Active Substance: SODIUM OXYBATE
     Dosage: 4.5 GRAM, BID
     Route: 048
  6. VALIUM [Suspect]
     Active Substance: DIAZEPAM
     Indication: Tremor
     Dates: start: 20110726
  7. LEVOTHYROXINE SODIUM [Suspect]
     Active Substance: LEVOTHYROXINE SODIUM
     Indication: Hypothyroidism
     Dosage: 0.112 MG, QD
     Route: 048
  8. ASPIRIN [Suspect]
     Active Substance: ASPIRIN
     Indication: Migraine
     Dosage: UNK, PRN
     Route: 048
  9. XANAX [Concomitant]
     Active Substance: ALPRAZOLAM
     Indication: Product used for unknown indication
  10. MODAFINIL [Concomitant]
     Active Substance: MODAFINIL
     Indication: Narcolepsy
     Dosage: 200 MG, BID
     Route: 048
  11. ADDERALL [Concomitant]
     Active Substance: AMPHETAMINE ASPARTATE\AMPHETAMINE SULFATE\DEXTROAMPHETAMINE SACCHARATE\DEXTROAMPHETAMINE SULFATE
     Indication: Narcolepsy
     Dosage: 20 MG, TID
     Route: 048
  12. METHADONE [Concomitant]
     Active Substance: METHADONE HYDROCHLORIDE
     Indication: Pain
     Dosage: 10 MG, QD
     Route: 048
  13. SERTRALINE HYDROCHLORIDE [Concomitant]
     Active Substance: SERTRALINE HYDROCHLORIDE
     Indication: Product used for unknown indication
  14. FIORICET [Concomitant]
     Active Substance: ACETAMINOPHEN\BUTALBITAL\CAFFEINE
     Indication: Migraine
     Dosage: UNK, PRN
     Route: 048
  15. VENLAFAXINE [Concomitant]
     Active Substance: VENLAFAXINE HYDROCHLORIDE
     Indication: Depression
     Dosage: 150 MG, QD
     Route: 048

REACTIONS (15)
  - Post-traumatic stress disorder [Not Recovered/Not Resolved]
  - Sudden onset of sleep [Recovered/Resolved]
  - Major depression [Recovered/Resolved]
  - Road traffic accident [Unknown]
  - Hypothyroidism [Recovered/Resolved]
  - Eye contusion [Unknown]
  - Headache [Not Recovered/Not Resolved]
  - Impaired driving ability [Recovered/Resolved]
  - Somnolence [Unknown]
  - Sleep paralysis [Recovered/Resolved]
  - Somnambulism [Recovered/Resolved]
  - Fall [Recovered/Resolved]
  - Abdominal pain upper [Not Recovered/Not Resolved]
  - Memory impairment [Not Recovered/Not Resolved]
  - Anxiety [Unknown]

NARRATIVE: CASE EVENT DATE: 20061201
